FAERS Safety Report 24558148 (Version 2)
Quarter: 2024Q4

REPORT INFORMATION
  Report Type: Report from Study
  Country: GT (occurrence: GT)
  Receive Date: 20241028
  Receipt Date: 20241213
  Transmission Date: 20250114
  Serious: Yes (Other)
  Sender: JOHNSON AND JOHNSON
  Company Number: GT-JNJFOC-20241069082

PATIENT
  Age: 51 Year
  Sex: Female

DRUGS (1)
  1. DARZALEX [Suspect]
     Active Substance: DARATUMUMAB
     Indication: Plasma cell myeloma
     Route: 042
     Dates: start: 20240923

REACTIONS (12)
  - Neuropathy peripheral [Unknown]
  - Rash [Recovered/Resolved]
  - Alopecia [Not Recovered/Not Resolved]
  - Constipation [Unknown]
  - Insomnia [Unknown]
  - Bone pain [Unknown]
  - Oedema peripheral [Unknown]
  - Hypertonic bladder [Unknown]
  - Night sweats [Unknown]
  - Urticaria [Recovered/Resolved]
  - Gastrooesophageal reflux disease [Unknown]
  - Paraesthesia [Recovered/Resolved]

NARRATIVE: CASE EVENT DATE: 20240901
